FAERS Safety Report 6184854-7 (Version None)
Quarter: 2009Q2

REPORT INFORMATION
  Report Type: 
  Country: None (occurrence: None)
  Receive Date: 20090508
  Receipt Date: 20090501
  Transmission Date: 20091009
  Serious: Yes (Congenital Anomaly, Other)
  Sender: FDA-Public Use
  Company Number: US-GILEAD-2009-0019801

PATIENT
  Sex: Male

DRUGS (6)
  1. TRUVADA [Suspect]
     Indication: DRUG EXPOSURE DURING PREGNANCY
     Route: 064
     Dates: start: 20080130, end: 20081007
  2. ATRIPLA [Suspect]
     Indication: DRUG EXPOSURE DURING PREGNANCY
     Route: 064
     Dates: end: 20080130
  3. FOLATE [Suspect]
     Indication: DRUG EXPOSURE DURING PREGNANCY
  4. FAMVIR [Suspect]
     Indication: DRUG EXPOSURE DURING PREGNANCY
  5. KALETRA [Concomitant]
     Indication: DRUG EXPOSURE DURING PREGNANCY
     Route: 064
     Dates: start: 20080130, end: 20080610
  6. KALETRA [Concomitant]
     Route: 064
     Dates: start: 20080610, end: 20081007

REACTIONS (1)
  - PELVIC KIDNEY [None]
